FAERS Safety Report 23520146 (Version 1)
Quarter: 2024Q1

REPORT INFORMATION
  Report Type: Spontaneous
  Country: DK (occurrence: None)
  Receive Date: 20240214
  Receipt Date: 20240214
  Transmission Date: 20240409
  Serious: Yes (Other)
  Sender: FDA-Public Use
  Company Number: 2024A030161

PATIENT
  Age: 60 Year
  Sex: Male

DRUGS (1)
  1. DAPAGLIFLOZIN [Suspect]
     Active Substance: DAPAGLIFLOZIN
     Indication: Diabetes mellitus
     Route: 048
     Dates: start: 20230418, end: 20231108

REACTIONS (2)
  - Phimosis [Not Recovered/Not Resolved]
  - Balanoposthitis [Not Recovered/Not Resolved]

NARRATIVE: CASE EVENT DATE: 20231008
